FAERS Safety Report 6081463-5 (Version None)
Quarter: 2009Q1

REPORT INFORMATION
  Report Type: 
  Country: None (occurrence: None)
  Receive Date: 20090213
  Receipt Date: 20090128
  Transmission Date: 20090719
  Serious: Yes (Other)
  Sender: FDA-Public Use
  Company Number: 8042675

PATIENT
  Age: 31 Year
  Sex: Female

DRUGS (4)
  1. PREDNISOLONE [Suspect]
     Indication: SCLERITIS
     Dosage: 40 MG /D PO
     Route: 048
     Dates: start: 20060101
  2. PREDNISOLONE [Suspect]
     Indication: SCLERITIS
     Dosage: 20 MG /D PO; 60 MG 1/D PO; 15MG/D PO
     Route: 048
  3. FLURBIPROFEN [Suspect]
     Indication: SCLERITIS
     Dosage: 150 MG/D
     Dates: start: 20060101
  4. INFLIXIMAB [Suspect]
     Indication: CROHN'S DISEASE
     Dosage: 5 MG/KG IV
     Route: 042

REACTIONS (12)
  - CAESAREAN SECTION [None]
  - CONJUNCTIVAL OEDEMA [None]
  - CROHN'S DISEASE [None]
  - DIPLOPIA [None]
  - DISEASE RECURRENCE [None]
  - DRUG EXPOSURE DURING PREGNANCY [None]
  - DRUG INEFFECTIVE [None]
  - EYE PAIN [None]
  - HEADACHE [None]
  - MYOSITIS [None]
  - PREGNANCY [None]
  - SCLERITIS [None]
